FAERS Safety Report 5153393-4 (Version None)
Quarter: 2006Q4

REPORT INFORMATION
  Report Type: 
  Country: None (occurrence: None)
  Receive Date: 20061113
  Receipt Date: 20061106
  Transmission Date: 20070319
  Serious: Yes (Hospitalization, Other)
  Sender: FDA-Public Use
  Company Number: FRWYE393007NOV03

PATIENT
  Age: 52 Year
  Sex: Male

DRUGS (3)
  1. SIROLIMUS (SIROLIMUS, TABLET, 0) [Suspect]
     Indication: PROPHYLAXIS AGAINST TRANSPLANT REJECTION
     Dosage: 4 MG DAILY AT THE TIME OF EVENT ONSET
     Route: 048
     Dates: start: 20030510
  2. CELLCEPT [Concomitant]
  3. CORTANCYL (PREDNISONE) [Concomitant]

REACTIONS (6)
  - PYELOCALIECTASIS [None]
  - RENAL FAILURE [None]
  - SERRATIA SEPSIS [None]
  - URETERIC STENOSIS [None]
  - URINARY TRACT INFECTION BACTERIAL [None]
  - UROSEPSIS [None]
